FAERS Safety Report 24424361 (Version 1)
Quarter: 2024Q4

REPORT INFORMATION
  Report Type: Spontaneous
  Country: US (occurrence: None)
  Receive Date: 20241009
  Receipt Date: 20241009
  Transmission Date: 20250115
  Serious: Yes (Hospitalization)
  Sender: Public
  Company Number: None

PATIENT
  Age: 80 Year
  Sex: Male

DRUGS (4)
  1. LISINOPRIL [Suspect]
     Active Substance: LISINOPRIL
     Indication: Hypertension
  2. AMLODIPINE BESYLATE [Suspect]
     Active Substance: AMLODIPINE BESYLATE
     Indication: Hypertension
  3. METOPROLOL [Suspect]
     Active Substance: METOPROLOL
  4. COREG [Suspect]
     Active Substance: CARVEDILOL

REACTIONS (6)
  - Hyperkalaemia [None]
  - Dyspnoea exertional [None]
  - Blood potassium increased [None]
  - Brain natriuretic peptide increased [None]
  - Rales [None]
  - Pulmonary congestion [None]

NARRATIVE: CASE EVENT DATE: 20240626
